FAERS Safety Report 8033152-5 (Version None)
Quarter: 2012Q1

REPORT INFORMATION
  Report Type: 
  Country: None (occurrence: None)
  Receive Date: 20120110
  Receipt Date: 20120110
  Transmission Date: 20120608
  Serious: Yes (Hospitalization)
  Sender: FDA-Public Use
  Company Number: None

PATIENT
  Sex: Male
  Weight: 35 kg

DRUGS (1)
  1. DIPHENHYDRAMINE HCL [Suspect]
     Indication: RASH
     Dosage: 25MG
     Route: 048
     Dates: start: 20120102, end: 20120103

REACTIONS (3)
  - ABDOMINAL DISTENSION [None]
  - URINARY RETENTION [None]
  - ANURIA [None]
